FAERS Safety Report 8169171-8 (Version None)
Quarter: 2012Q1

REPORT INFORMATION
  Report Type: 
  Country: None (occurrence: None)
  Receive Date: 20120227
  Receipt Date: 20120221
  Transmission Date: 20120608
  Serious: Yes (Hospitalization, Other)
  Sender: FDA-Public Use
  Company Number: US-AMGEN-USASP2010011871

PATIENT
  Age: 67 Year
  Sex: Female
  Weight: 61.224 kg

DRUGS (10)
  1. PROZAC [Concomitant]
     Dosage: 40 MG, QD
     Route: 048
  2. PROMETHAZINE [Concomitant]
  3. PRILOSEC [Concomitant]
     Dosage: 20 MG, QD
  4. LISINOPRIL [Concomitant]
     Dosage: UNK
     Dates: start: 20091101
  5. IBUPROFEN [Concomitant]
     Dosage: 600 MG, PRN
     Route: 048
  6. PROLIA [Suspect]
     Indication: OSTEOPOROSIS POSTMENOPAUSAL
     Dosage: 60 MG, Q6MO
     Route: 058
     Dates: start: 20100728, end: 20100728
  7. ZOCOR [Concomitant]
     Dosage: UNK
     Dates: start: 20100301
  8. LEVOTHYROXINE SODIUM [Concomitant]
     Dosage: UNK
     Dates: start: 20080501
  9. MEDROXYPROGESTERONE [Concomitant]
     Dosage: 2.5 MG, QD
  10. ESTRADIOL [Concomitant]
     Dosage: 1 MG, QD

REACTIONS (5)
  - ARTHRITIS BACTERIAL [None]
  - STAPHYLOCOCCAL OSTEOMYELITIS [None]
  - BLADDER PAIN [None]
  - OSTEITIS [None]
  - GROIN PAIN [None]
